FAERS Safety Report 9026750 (Version 1)
Quarter: 2012Q4

REPORT INFORMATION
  Report Type: Spontaneous
  Country: US (occurrence: None)
  Receive Date: 20121231
  Receipt Date: 20121231
  Transmission Date: 20130627
  Serious: Yes (Other)
  Sender: FDA-Public Use
  Company Number: 2012034292

PATIENT
  Age: 45 Year
  Sex: Male

DRUGS (1)
  1. IVIG [Suspect]
     Indication: TRANSPLANT REJECTION

REACTIONS (5)
  - Transplant rejection [None]
  - Blood creatinine increased [None]
  - Urine output decreased [None]
  - Drug ineffective for unapproved indication [None]
  - Thrombocytopenia [None]
